FAERS Safety Report 6353485-8 (Version None)
Quarter: 2009Q3

REPORT INFORMATION
  Report Type: 
  Country: None (occurrence: None)
  Receive Date: 20090912
  Receipt Date: 20090622
  Transmission Date: 20100115
  Serious: No
  Sender: FDA-Public Use
  Company Number: US-ABBOTT-08P-163-0470681-00

PATIENT
  Sex: Female
  Weight: 126.21 kg

DRUGS (11)
  1. HUMIRA [Suspect]
     Indication: RHEUMATOID ARTHRITIS
     Route: 050
     Dates: start: 20080729
  2. METHOTREXATE [Concomitant]
     Indication: DRUG USE FOR UNKNOWN INDICATION
     Route: 048
  3. LEVOTHYROXINE SODIUM [Concomitant]
     Indication: HORMONE REPLACEMENT THERAPY
     Dosage: 175 MCG- 7.5 TABLETS, 1 IN 1 W
     Route: 048
  4. LEVOTHYROXINE SODIUM [Concomitant]
     Indication: TOXIC NODULAR GOITRE
  5. HUMOTROPE [Concomitant]
     Indication: BLOOD GROWTH HORMONE
     Route: 050
  6. METFORMIN HCL [Concomitant]
     Indication: TYPE 2 DIABETES MELLITUS
     Route: 048
  7. EXENATIDE [Concomitant]
     Indication: TYPE 2 DIABETES MELLITUS
     Route: 050
  8. GABAPENTIN [Concomitant]
     Indication: NEUROPATHY PERIPHERAL
     Route: 048
  9. PREDNISONE [Concomitant]
     Indication: RHEUMATOID ARTHRITIS
     Route: 048
  10. CODEINE 4 [Concomitant]
     Indication: RHEUMATOID ARTHRITIS
     Dosage: EVERY 4-6 HOURS, AS REQUIRED
     Route: 048
  11. CARISOPRODOL [Concomitant]
     Indication: MYALGIA
     Dosage: EVERY 6-8 HOURS
     Route: 048

REACTIONS (1)
  - DRUG DELIVERY SYSTEM MALFUNCTION [None]
